FAERS Safety Report 18708598 (Version 1)
Quarter: 2021Q1

REPORT INFORMATION
  Report Type: Spontaneous
  Country: NL (occurrence: NL)
  Receive Date: 20210106
  Receipt Date: 20210106
  Transmission Date: 20210419
  Serious: Yes (Hospitalization)
  Sender: FDA-Public Use
  Company Number: NL-TEVA-2020-NL-1865431

PATIENT
  Age: 61 Year
  Sex: Female
  Weight: 69 kg

DRUGS (1)
  1. OMEPRAZOL CAPSULE MSR 40MG / OMEPRAZOL TEVA CAPSULE MSR 40MG [Suspect]
     Active Substance: OMEPRAZOLE
     Indication: TONSILLAR HYPERTROPHY
     Dosage: 80 MILLIGRAM DAILY; FOR 4 WEEKS
     Dates: start: 20200704, end: 20200803

REACTIONS (7)
  - Abdominal pain [Unknown]
  - Constipation [Unknown]
  - Renal impairment [Recovered/Resolved]
  - Pyrexia [Recovered/Resolved]
  - Headache [Unknown]
  - Oropharyngeal pain [Unknown]
  - Asthenia [Recovered/Resolved]

NARRATIVE: CASE EVENT DATE: 20200723
